FAERS Safety Report 18298854 (Version 1)
Quarter: 2020Q3

REPORT INFORMATION
  Report Type: Spontaneous
  Country: IT (occurrence: IT)
  Receive Date: 20200922
  Receipt Date: 20200922
  Transmission Date: 20201103
  Serious: Yes (Hospitalization)
  Sender: FDA-Public Use
  Company Number: NVSC2020IT253456

PATIENT
  Age: 38 Year
  Sex: Male

DRUGS (8)
  1. SERTRALINE [Suspect]
     Active Substance: SERTRALINE HYDROCHLORIDE
     Indication: DRUG ABUSE
     Dosage: 100 MG, UNKNOWN
     Route: 048
     Dates: start: 20180921, end: 20180921
  2. NOZINAN [Suspect]
     Active Substance: LEVOMEPROMAZINE
     Indication: DRUG ABUSE
     Dosage: 2 DF, UNKNOWN
     Route: 048
     Dates: start: 20180921, end: 20180921
  3. FELISON [Suspect]
     Active Substance: FLURAZEPAM MONOHYDROCHLORIDE
     Indication: DRUG ABUSE
     Dosage: 1 DF, UNKNOWN
     Route: 048
     Dates: start: 20180921, end: 20180921
  4. RISPERDAL [Suspect]
     Active Substance: RISPERIDONE
     Indication: DRUG ABUSE
     Dosage: 1 DF, UNKNOWN
     Route: 048
     Dates: start: 20180921, end: 20180921
  5. TAVOR [SIMVASTATIN] [Suspect]
     Active Substance: SIMVASTATIN
     Indication: DRUG ABUSE
     Dosage: 5 MG, UNKNOWN
     Route: 048
     Dates: start: 20180921, end: 20180921
  6. GABAPENTIN. [Suspect]
     Active Substance: GABAPENTIN
     Indication: DRUG ABUSE
     Dosage: 600 MG, UNKNOWN
     Route: 048
     Dates: start: 20180921, end: 20180921
  7. CLOZAPINE. [Suspect]
     Active Substance: CLOZAPINE
     Indication: DRUG ABUSE
     Dosage: 200 MG, UNKNOWN
     Route: 048
     Dates: start: 20180921, end: 20180921
  8. SERTRALINE [Suspect]
     Active Substance: SERTRALINE HYDROCHLORIDE
     Indication: CARDIAC FAILURE CONGESTIVE

REACTIONS (3)
  - Sopor [Recovering/Resolving]
  - Drug abuse [Recovering/Resolving]
  - Vomiting [Recovering/Resolving]

NARRATIVE: CASE EVENT DATE: 20180921
